FAERS Safety Report 7513870-5 (Version None)
Quarter: 2011Q2

REPORT INFORMATION
  Report Type: 
  Country: None (occurrence: None)
  Receive Date: 20110531
  Receipt Date: 20110518
  Transmission Date: 20111010
  Serious: Yes (Hospitalization)
  Sender: FDA-Public Use
  Company Number: PHHY2011FR43350

PATIENT
  Sex: Male
  Weight: 74 kg

DRUGS (4)
  1. LAMISIL [Suspect]
     Dosage: UNK
     Dates: start: 20110321, end: 20110412
  2. IBUPROFEN [Concomitant]
     Dosage: UNK
     Route: 048
     Dates: start: 20110408, end: 20110412
  3. ACETAMINOPHEN [Concomitant]
     Dosage: UNK
     Route: 048
     Dates: start: 20110408, end: 20110412
  4. MINOCIN [Suspect]
     Indication: FOLLICULITIS
     Dosage: 1 DF, QD
     Route: 048
     Dates: start: 20110321, end: 20110412

REACTIONS (14)
  - DRUG RASH WITH EOSINOPHILIA AND SYSTEMIC SYMPTOMS [None]
  - HYPERTHERMIA [None]
  - NAIL DYSTROPHY [None]
  - RASH [None]
  - PRURITUS [None]
  - LYMPHADENOPATHY [None]
  - CYTOLYTIC HEPATITIS [None]
  - RASH MACULO-PAPULAR [None]
  - ERYTHEMA [None]
  - SKIN EXFOLIATION [None]
  - FOOT DEFORMITY [None]
  - FACE OEDEMA [None]
  - ASTHENIA [None]
  - EOSINOPHILIA [None]
